FAERS Safety Report 19835362 (Version 1)
Quarter: 2021Q3

REPORT INFORMATION
  Report Type: Other
  Country: US (occurrence: US)
  Receive Date: 20210916
  Receipt Date: 20210916
  Transmission Date: 20211014
  Serious: Yes (Hospitalization, Other)
  Sender: FDA-Public Use
  Company Number: US-ROCHE-2910687

PATIENT
  Sex: Male

DRUGS (1)
  1. ATEZOLIZUMAB. [Suspect]
     Active Substance: ATEZOLIZUMAB
     Indication: BLADDER TRANSITIONAL CELL CARCINOMA
     Dosage: 3 DOSES
     Route: 065

REACTIONS (2)
  - Adrenal insufficiency [Unknown]
  - Acute coronary syndrome [Recovered/Resolved]
